FAERS Safety Report 8998690 (Version 1)
Quarter: 2013Q1

REPORT INFORMATION
  Report Type: Spontaneous
  Country: US (occurrence: US)
  Receive Date: 20130103
  Receipt Date: 20130103
  Transmission Date: 20140127
  Serious: No
  Sender: FDA-Public Use
  Company Number: US-009507513-1212USA011246

PATIENT
  Age: 51 Year
  Sex: Female

DRUGS (2)
  1. HYZAAR [Suspect]
     Indication: HYPERTENSION
     Dosage: BLANK (50MG/12.5MG)
     Route: 048
  2. HYZAAR [Suspect]
     Dosage: NUMBER 717 ON IT  (50MG/12.5MG )
     Route: 048

REACTIONS (1)
  - Rash [Not Recovered/Not Resolved]
